FAERS Safety Report 18967773 (Version 1)
Quarter: 2021Q1

REPORT INFORMATION
  Report Type: Spontaneous
  Country: US (occurrence: US)
  Receive Date: 20210304
  Receipt Date: 20210304
  Transmission Date: 20210420
  Serious: Yes (Life-Threatening, Hospitalization)
  Sender: FDA-Public Use
  Company Number: None

PATIENT
  Age: 29 Year
  Sex: Male
  Weight: 81 kg

DRUGS (1)
  1. O.P.M.S GOLD KRATOM [Suspect]
     Active Substance: HERBALS\MITRAGYNINE
     Indication: DRUG WITHDRAWAL SYNDROME
     Dosage: ?          QUANTITY:4 CAPSULE(S);OTHER FREQUENCY:EVERYDAY;?
     Route: 048
     Dates: start: 20210223, end: 20210302

REACTIONS (12)
  - Depressed level of consciousness [None]
  - Drug dependence [None]
  - Hyperhidrosis [None]
  - Abnormal behaviour [None]
  - Syncope [None]
  - Aggression [None]
  - Agitation [None]
  - Pruritus [None]
  - Respiratory depression [None]
  - Tachycardia [None]
  - Product complaint [None]
  - Hypertension [None]

NARRATIVE: CASE EVENT DATE: 20210302
